FAERS Safety Report 9992634 (Version 1)
Quarter: 2014Q1

REPORT INFORMATION
  Report Type: Spontaneous
  Country: US (occurrence: US)
  Receive Date: 20140310
  Receipt Date: 20140310
  Transmission Date: 20141002
  Serious: Yes (Other)
  Sender: FDA-Public Use
  Company Number: US-ACTAVIS-2014-03805

PATIENT
  Age: 65 Year
  Sex: Male

DRUGS (1)
  1. MINOCYCLINE HCL (WATSON LABORATORIES) [Suspect]
     Indication: OCULAR ROSACEA
     Dosage: UNK
     Route: 065

REACTIONS (2)
  - Scleral pigmentation [Unknown]
  - Pigmentation disorder [Unknown]
